FAERS Safety Report 10209454 (Version 1)
Quarter: 2014Q2

REPORT INFORMATION
  Report Type: Spontaneous
  Country: US (occurrence: US)
  Receive Date: 20140601
  Receipt Date: 20140601
  Transmission Date: 20141212
  Serious: No
  Sender: FDA-Public Use
  Company Number: US-009507513-1405USA014360

PATIENT
  Age: 60 Year
  Sex: Female

DRUGS (2)
  1. NASONEX [Suspect]
     Dosage: 4 DF, QD; 2 SPRAYS IN EACH NOSTRIL ONCE DAILY
     Route: 045
     Dates: start: 20140522, end: 20140522
  2. NASONEX [Suspect]
     Dosage: 4 DF, QD; 2 SPRAYS IN EACH NOSTRIL ONCE DAILY
     Route: 045
     Dates: start: 20140526, end: 20140526

REACTIONS (3)
  - Incorrect dose administered [Unknown]
  - Product quality issue [Unknown]
  - No adverse event [Unknown]
